FAERS Safety Report 23703699 (Version 1)
Quarter: 2024Q2

REPORT INFORMATION
  Report Type: Other
  Country: JP (occurrence: JP)
  Receive Date: 20240403
  Receipt Date: 20240403
  Transmission Date: 20240716
  Serious: Yes (Hospitalization, Other)
  Sender: FDA-Public Use
  Company Number: JP-B.Braun Medical Inc.-2155194

PATIENT
  Age: 90 Year
  Sex: Male
  Weight: 52.1 kg

DRUGS (11)
  1. HEPARIN SODIUM IN DEXTROSE [Suspect]
     Active Substance: HEPARIN SODIUM
     Indication: Anticoagulant therapy
     Route: 042
  2. ESOMEPRAZOLE. [Suspect]
     Active Substance: ESOMEPRAZOLE MAGNESIUM
  3. IRON SUCROSE [Concomitant]
     Active Substance: IRON SUCROSE
  4. DARBEPOETIN ALFA [Concomitant]
     Active Substance: DARBEPOETIN ALFA
  5. CALCIUM CARBONATE [Concomitant]
     Active Substance: CALCIUM CARBONATE
  6. DOXAZOSIN [Concomitant]
     Active Substance: DOXAZOSIN MESYLATE
  7. CARVEDILOL [Concomitant]
     Active Substance: CARVEDILOL
  8. AMLODIPINE [Concomitant]
     Active Substance: AMLODIPINE BESYLATE
  9. NIFEDIPINE [Concomitant]
     Active Substance: NIFEDIPINE
  10. TELMISARTAN [Concomitant]
     Active Substance: TELMISARTAN
  11. Maintenance hemodialysis therapy [Concomitant]

REACTIONS (2)
  - Gastrointestinal haemorrhage [Not Recovered/Not Resolved]
  - Iron deficiency anaemia [Not Recovered/Not Resolved]
